FAERS Safety Report 9968972 (Version 1)
Quarter: 2014Q1

REPORT INFORMATION
  Report Type: Report from Study
  Country: US (occurrence: US)
  Receive Date: 20140306
  Receipt Date: 20140306
  Transmission Date: 20141002
  Serious: No
  Sender: FDA-Public Use
  Company Number: US-ABBVIE-13P-163-1143492-00

PATIENT
  Sex: Female

DRUGS (8)
  1. HUMIRA [Suspect]
     Indication: CROHN^S DISEASE
     Dates: start: 2009
  2. HUMIRA [Suspect]
  3. HUMIRA [Suspect]
     Dates: start: 2013
  4. PENTASA [Concomitant]
     Indication: CROHN^S DISEASE
     Dosage: BY MOUTH DAILY
  5. PURINETHOL [Concomitant]
     Indication: CROHN^S DISEASE
     Dosage: 25 MG DAILY BY MOUTH, ALTERNATING ONE DAY
  6. PURINETHOL [Concomitant]
     Dosage: 50 MG DAILY BY MOUTH, ALTERNATING ONE DAY
  7. YASMIN [Concomitant]
     Indication: CONTRACEPTION
     Dosage: DAILY
  8. FOSAMAX [Concomitant]
     Indication: PRODUCT USED FOR UNKNOWN INDICATION
     Dosage: 70 MG DAILY BY MOUTH

REACTIONS (6)
  - Gastrointestinal inflammation [Unknown]
  - Injection site pain [Recovered/Resolved]
  - Injection site pain [Recovered/Resolved]
  - Weight decreased [Unknown]
  - Diarrhoea [Unknown]
  - Anxiety [Unknown]
